FAERS Safety Report 14919612 (Version 1)
Quarter: 2018Q2

REPORT INFORMATION
  Report Type: Spontaneous
  Country: US (occurrence: US)
  Receive Date: 20180502
  Receipt Date: 20180502
  Transmission Date: 20180711
  Serious: No
  Sender: FDA-Public Use
  Company Number: None

PATIENT
  Age: 83 Year
  Sex: Female
  Weight: 55.34 kg

DRUGS (4)
  1. MULTIVITAMIN-MINERAL [Concomitant]
  2. CHONDROTIN-GLUCOSAMINE [Concomitant]
  3. RITUXAN [Suspect]
     Active Substance: RITUXIMAB
     Indication: MYASTHENIA GRAVIS
     Route: 042
     Dates: start: 20180309, end: 20180309
  4. OMEGA 3 [Concomitant]
     Active Substance: OMEGA-3 FATTY ACIDS

REACTIONS (7)
  - Anxiety [None]
  - Musculoskeletal pain [None]
  - Insomnia [None]
  - Palpitations [None]
  - Dysphagia [None]
  - Tremor [None]
  - Arthralgia [None]

NARRATIVE: CASE EVENT DATE: 20180309
